FAERS Safety Report 6965240-6 (Version None)
Quarter: 2010Q3

REPORT INFORMATION
  Report Type: 
  Country: None (occurrence: None)
  Receive Date: 20100903
  Receipt Date: 20100830
  Transmission Date: 20110219
  Serious: Yes (Death)
  Sender: FDA-Public Use
  Company Number: PHHY2010MX57636

PATIENT
  Sex: Female

DRUGS (4)
  1. STALEVO 100 [Suspect]
     Indication: PARKINSON'S DISEASE
     Dosage: 200/50/12.5, 3 DF, QD
     Route: 048
  2. METFORMIN [Concomitant]
     Indication: DIABETES MELLITUS
     Dosage: UNK
  3. BROTIZOLAM [Concomitant]
     Indication: SLEEP DISORDER
     Dosage: UNK
  4. TRITACE [Concomitant]
     Indication: HYPERTENSION
     Dosage: UNK

REACTIONS (1)
  - RESPIRATORY DISORDER [None]
